FAERS Safety Report 6165364-X (Version None)
Quarter: 2009Q2

REPORT INFORMATION
  Report Type: 
  Country: None (occurrence: None)
  Receive Date: 20090423
  Receipt Date: 20090416
  Transmission Date: 20091009
  Serious: No
  Sender: FDA-Public Use
  Company Number: US-B.I. PHARMACEUTICALS,INC./RIDGEFIELD-2009-BP-04884BP

PATIENT
  Sex: Female

DRUGS (9)
  1. ZANTAC 150 [Suspect]
     Indication: DYSPEPSIA
     Dosage: 300MG
     Route: 048
     Dates: start: 20090401
  2. Z PACK-ZITHROMAX [Concomitant]
     Indication: BRONCHITIS
     Route: 048
     Dates: start: 20090319, end: 20090321
  3. Z PACK-ZITHROMAX [Concomitant]
     Indication: SINUSITIS
  4. PREDNISONE [Concomitant]
     Indication: BRONCHITIS
     Route: 048
     Dates: start: 20090319, end: 20090329
  5. PREDNISONE [Concomitant]
     Indication: SINUSITIS
  6. DYAZIDE [Concomitant]
     Indication: OEDEMA PERIPHERAL
     Route: 048
     Dates: start: 20090319
  7. ADVAIR HFA [Concomitant]
     Indication: ASTHMA
     Route: 048
  8. ARIMIDEX [Concomitant]
     Indication: OSTEITIS DEFORMANS
     Route: 048
     Dates: start: 20050101
  9. ARIMIDEX [Concomitant]
     Indication: NIPPLE DISORDER

REACTIONS (2)
  - DYSPEPSIA [None]
  - FLATULENCE [None]
